FAERS Safety Report 6385015-9 (Version None)
Quarter: 2009Q4

REPORT INFORMATION
  Report Type: 
  Country: None (occurrence: None)
  Receive Date: 20091002
  Receipt Date: 20090923
  Transmission Date: 20100525
  Serious: Yes (Hospitalization)
  Sender: FDA-Public Use
  Company Number: PHHO2009KR11646

PATIENT
  Sex: Female
  Weight: 49.4 kg

DRUGS (3)
  1. ERL 080A ERL+TAB [Suspect]
     Indication: RENAL TRANSPLANT
     Dosage: UNK
     Route: 048
     Dates: start: 20090311, end: 20090908
  2. TACROBELL [Concomitant]
     Indication: IMMUNOSUPPRESSION
  3. PRENOLIN [Concomitant]
     Indication: IMMUNOSUPPRESSION

REACTIONS (1)
  - SKIN LESION [None]
